FAERS Safety Report 5647572-7 (Version None)
Quarter: 2008Q1

REPORT INFORMATION
  Report Type: 
  Country: None (occurrence: None)
  Receive Date: 20080228
  Receipt Date: 20080214
  Transmission Date: 20080703
  Serious: Yes (Hospitalization)
  Sender: FDA-Public Use
  Company Number: US022698

PATIENT
  Age: 82 Year
  Sex: Female

DRUGS (4)
  1. ACTIQ [Suspect]
     Indication: BACK PAIN
     Dosage: 600 UG TID BUCCAL
     Route: 002
     Dates: start: 20020101, end: 20080101
  2. ACTIQ [Suspect]
     Indication: BACK PAIN
     Dosage: 600 UG TID BUCCAL
     Route: 002
     Dates: start: 20080101
  3. FENTANYL TRANSDERMAL SYSTEM [Suspect]
     Indication: BACK PAIN
     Dosage: TRANSDERMAL
     Route: 062
     Dates: start: 20020101, end: 20080101
  4. FENTANYL TRANSDERMAL SYSTEM [Suspect]
     Indication: BACK PAIN
     Dosage: TRANSDERMAL
     Route: 062
     Dates: start: 20080101

REACTIONS (4)
  - BLOOD COUNT ABNORMAL [None]
  - HYPOTENSION [None]
  - SCREAMING [None]
  - WITHDRAWAL SYNDROME [None]
